FAERS Safety Report 23887067 (Version 2)
Quarter: 2025Q1

REPORT INFORMATION
  Report Type: Other
  Country: BR (occurrence: BR)
  Receive Date: 20240523
  Receipt Date: 20250106
  Transmission Date: 20250408
  Serious: No
  Sender: TOLMAR
  Company Number: BR-TOLMAR, INC.-24BR048925

PATIENT
  Age: 8 Year
  Sex: Female

DRUGS (3)
  1. ELIGARD [Suspect]
     Active Substance: LEUPROLIDE ACETATE
     Indication: Precocious puberty
     Dosage: 45 MILLIGRAM, Q 6 MONTH
     Route: 058
     Dates: start: 20230801
  2. ELIGARD [Suspect]
     Active Substance: LEUPROLIDE ACETATE
     Dosage: 45 MILLIGRAM, Q 6 MONTH
     Route: 058
     Dates: start: 20240423
  3. ELIGARD [Suspect]
     Active Substance: LEUPROLIDE ACETATE
     Indication: Precocious puberty

REACTIONS (3)
  - Intentional product use issue [Unknown]
  - Inappropriate schedule of product administration [Unknown]
  - Insurance issue [Unknown]

NARRATIVE: CASE EVENT DATE: 20230801
